FAERS Safety Report 9194263 (Version 1)
Quarter: 2013Q1

REPORT INFORMATION
  Report Type: Spontaneous
  Country: DE (occurrence: DE)
  Receive Date: 20130327
  Receipt Date: 20130327
  Transmission Date: 20140127
  Serious: Yes (Other)
  Sender: FDA-Public Use
  Company Number: GXKR2013DE001287

PATIENT
  Sex: Male

DRUGS (1)
  1. OLANZAPIN [Suspect]
     Dosage: UNK UKN, UNK
     Route: 048
     Dates: start: 2006

REACTIONS (1)
  - Acne fulminans [Not Recovered/Not Resolved]
